FAERS Safety Report 5890251-1 (Version None)
Quarter: 2008Q3

REPORT INFORMATION
  Report Type: 
  Country: None (occurrence: None)
  Receive Date: 20080919
  Receipt Date: 20080911
  Transmission Date: 20090109
  Serious: Yes (Other)
  Sender: FDA-Public Use
  Company Number: US-PFIZER INC-2008076572

PATIENT
  Age: 71 Year
  Sex: Female

DRUGS (1)
  1. LIPITOR [Suspect]

REACTIONS (5)
  - BLOOD CHOLESTEROL INCREASED [None]
  - BLOOD TRIGLYCERIDES INCREASED [None]
  - CHROMATURIA [None]
  - NERVOUSNESS [None]
  - URINARY TRACT INFECTION [None]
